FAERS Safety Report 20049621 (Version 1)
Quarter: 2021Q4

REPORT INFORMATION
  Report Type: Other
  Country: US (occurrence: None)
  Receive Date: 20211109
  Receipt Date: 20211109
  Transmission Date: 20220303
  Serious: Yes (Hospitalization, Other)
  Sender: FDA-Public Use
  Company Number: US-Invatech-000143

PATIENT
  Age: 45 Year
  Sex: Female

DRUGS (3)
  1. PYRIDOSTIGMINE [Suspect]
     Active Substance: PYRIDOSTIGMINE
     Indication: Myasthenia gravis
  2. PREDNISONE [Suspect]
     Active Substance: PREDNISONE
     Indication: Myasthenia gravis
     Route: 048
  3. LEVOTHYROXINE [Concomitant]
     Active Substance: LEVOTHYROXINE
     Indication: Thyroid disorder

REACTIONS (3)
  - Dyspnoea [Recovered/Resolved]
  - Stridor [Recovered/Resolved]
  - Myasthenia gravis [Recovered/Resolved]
